FAERS Safety Report 19116633 (Version 3)
Quarter: 2021Q2

REPORT INFORMATION
  Report Type: Report from Study
  Country: US (occurrence: US)
  Receive Date: 20210409
  Receipt Date: 20210429
  Transmission Date: 20210717
  Serious: Yes (Death, Life-Threatening, Hospitalization, Other)
  Sender: FDA-Public Use
  Company Number: US-CELGENEUS-USA-20200901926

PATIENT
  Age: 58 Year
  Sex: Male
  Weight: 58.7 kg

DRUGS (19)
  1. CC?5013 [Suspect]
     Active Substance: LENALIDOMIDE
     Dosage: 10 MILLIGRAM
     Route: 048
     Dates: start: 20160701, end: 20160725
  2. LORAZEPAM. [Concomitant]
     Active Substance: LORAZEPAM
     Indication: ANXIETY
     Dosage: .5 MILLIGRAM
     Route: 048
     Dates: start: 20201223
  3. CYCLOBENZAPRINE. [Concomitant]
     Active Substance: CYCLOBENZAPRINE
     Indication: MUSCLE SPASMS
     Dosage: 15 MILLIGRAM
     Route: 048
     Dates: start: 20191007
  4. TERBINAFINE HCL [Concomitant]
     Active Substance: TERBINAFINE HYDROCHLORIDE
     Indication: PRODUCT USED FOR UNKNOWN INDICATION
     Dosage: 250 MILLIGRAM
     Route: 048
     Dates: start: 20190814, end: 20200323
  5. IBUPROFEN. [Concomitant]
     Active Substance: IBUPROFEN
     Indication: PAIN
     Dosage: 200 MILLIGRAM
     Route: 048
  6. DUVELISIB [Concomitant]
     Active Substance: DUVELISIB
     Indication: B-CELL LYMPHOMA
     Dosage: 50 MILLIGRAM
     Route: 048
     Dates: start: 20190412, end: 20200207
  7. TRAZODONE [Concomitant]
     Active Substance: TRAZODONE HYDROCHLORIDE
     Indication: PRODUCT USED FOR UNKNOWN INDICATION
     Dosage: 50 MILLIGRAM
     Route: 048
     Dates: start: 20191202
  8. CC?5013 [Suspect]
     Active Substance: LENALIDOMIDE
     Route: 048
     Dates: end: 201610
  9. RITUXIMAB. [Suspect]
     Active Substance: RITUXIMAB
     Indication: LYMPHOMA
     Dosage: 6?8 CYCLES
     Route: 065
     Dates: start: 20020420, end: 20021024
  10. RITUXIMAB. [Suspect]
     Active Substance: RITUXIMAB
     Route: 065
  11. DUVELISIB [Concomitant]
     Active Substance: DUVELISIB
     Dosage: 50 MILLIGRAM
     Route: 048
     Dates: start: 20201125
  12. RITUXIMAB. [Suspect]
     Active Substance: RITUXIMAB
     Dosage: 375 MILLIGRAM
     Route: 041
     Dates: start: 20150804, end: 20150804
  13. CC?5013 [Suspect]
     Active Substance: LENALIDOMIDE
     Indication: LYMPHOMA
     Dosage: 10 MILLIGRAM
     Route: 048
     Dates: start: 20150727, end: 20150817
  14. RITUXIMAB. [Suspect]
     Active Substance: RITUXIMAB
     Dosage: 6 CYCLES
     Route: 065
     Dates: start: 20111011, end: 20120306
  15. PACLITAXEL. [Concomitant]
     Active Substance: PACLITAXEL
     Indication: B-CELL LYMPHOMA
     Route: 065
     Dates: start: 20210212
  16. CC?5013 [Suspect]
     Active Substance: LENALIDOMIDE
     Dosage: 10 MILLIGRAM
     Route: 048
     Dates: start: 20170313, end: 201704
  17. RITUXIMAB. [Suspect]
     Active Substance: RITUXIMAB
     Dosage: 375 MILLIGRAM
     Route: 041
     Dates: start: 20161024, end: 20161024
  18. HYDROCODONE?ACETAMINOPHEN [Concomitant]
     Active Substance: ACETAMINOPHEN\HYDROCODONE
     Indication: PAIN
     Dosage: 5?325 MILLIGRAM
     Route: 048
     Dates: start: 20190403, end: 20190428
  19. ACYCLOVIR. [Concomitant]
     Active Substance: ACYCLOVIR
     Indication: PRODUCT USED FOR UNKNOWN INDICATION
     Dosage: 800 MILLIGRAM
     Route: 048
     Dates: start: 20200807

REACTIONS (3)
  - Acute respiratory distress syndrome [Fatal]
  - Pneumonia aspiration [Not Recovered/Not Resolved]
  - Colorectal adenocarcinoma [Not Recovered/Not Resolved]

NARRATIVE: CASE EVENT DATE: 20200102
